FAERS Safety Report 5107371-1 (Version None)
Quarter: 2006Q3

REPORT INFORMATION
  Report Type: 
  Country: None (occurrence: None)
  Receive Date: 20060914
  Receipt Date: 20060901
  Transmission Date: 20061208
  Serious: Yes (Other)
  Sender: FDA-Public Use
  Company Number: 2006102698

PATIENT
  Age: 58 Year
  Sex: Female
  Weight: 52.1637 kg

DRUGS (15)
  1. CHANTIX [Suspect]
     Indication: SMOKING CESSATION THERAPY
     Dosage: 0.5 MG (0.5 MG, 1 IN 1 D),
     Dates: start: 20060801, end: 20060828
  2. CODEINE SUL TAB [Suspect]
     Indication: DRUG USE FOR UNKNOWN INDICATION
  3. SEREVENT [Concomitant]
  4. PULMICORT [Concomitant]
  5. MONTELUKAST (MONTELUKAST) [Concomitant]
  6. SPIRIVA [Concomitant]
  7. ALBUTEROL [Concomitant]
  8. VALIUM [Concomitant]
  9. TRAZODONE HCL [Concomitant]
  10. HYDROXYZINE [Concomitant]
  11. RHINOCORT [Concomitant]
  12. UNIPHYL [Concomitant]
  13. FENTANYL [Concomitant]
  14. VICODIN [Concomitant]
  15. QUININE SULFATE [Concomitant]

REACTIONS (12)
  - ABNORMAL DREAMS [None]
  - CONSTIPATION [None]
  - COUGH [None]
  - DECREASED APPETITE [None]
  - DISEASE RECURRENCE [None]
  - DIZZINESS [None]
  - DYSPNOEA [None]
  - GLAUCOMA [None]
  - HALLUCINATION [None]
  - INSOMNIA [None]
  - PAIN IN EXTREMITY [None]
  - STOMACH DISCOMFORT [None]
